FAERS Safety Report 6788891-0 (Version None)
Quarter: 2010Q2

REPORT INFORMATION
  Report Type: 
  Country: None (occurrence: None)
  Receive Date: 20100623
  Receipt Date: 20080624
  Transmission Date: 20101027
  Serious: No
  Sender: FDA-Public Use
  Company Number: US-PFIZER INC-2008048127

PATIENT
  Sex: Female
  Weight: 69.85 kg

DRUGS (5)
  1. GEODON [Suspect]
     Indication: SCHIZOPHRENIA
     Dates: start: 20060801, end: 20070201
  2. VITAMINS [Concomitant]
     Indication: MYOCARDIAL INFARCTION
  3. LISINOPRIL [Concomitant]
     Indication: MYOCARDIAL INFARCTION
  4. FUROSEMIDE [Concomitant]
     Indication: MYOCARDIAL INFARCTION
  5. POTASSIUM [Concomitant]
     Indication: MYOCARDIAL INFARCTION

REACTIONS (1)
  - ALOPECIA [None]
